FAERS Safety Report 9003887 (Version 1)
Quarter: 2013Q1

REPORT INFORMATION
  Report Type: Spontaneous
  Country: US (occurrence: US)
  Receive Date: 20130108
  Receipt Date: 20130108
  Transmission Date: 20140127
  Serious: Yes (Hospitalization, Other)
  Sender: FDA-Public Use
  Company Number: US-009507513-1301USA001832

PATIENT
  Age: 17 Year
  Sex: Male

DRUGS (2)
  1. SINGULAIR [Suspect]
     Indication: ILL-DEFINED DISORDER
     Route: 048
  2. ADVAIR [Suspect]
     Route: 055

REACTIONS (3)
  - Nephritis [Unknown]
  - Rash [Unknown]
  - Hepatitis cholestatic [Unknown]
